FAERS Safety Report 26160287 (Version 1)
Quarter: 2025Q4

REPORT INFORMATION
  Report Type: Spontaneous
  Country: EU (occurrence: EU)
  Receive Date: 20251216
  Receipt Date: 20251216
  Transmission Date: 20260118
  Serious: Yes (Other)
  Sender: SANDOZ
  Company Number: EU-002147023-NVSC2025FR190957

PATIENT
  Age: 68 Year
  Sex: Male

DRUGS (1)
  1. TOBRADEX [Suspect]
     Active Substance: DEXAMETHASONE\TOBRAMYCIN
     Indication: Product used for unknown indication
     Dosage: UNK  (UNK (1-1 DROP) (ONE DROP IN THE MORNING  AND EVENING IN EACH EYE FOR 8 DAYS)
     Route: 065

REACTIONS (1)
  - Myopia [Unknown]
